FAERS Safety Report 6775393-0 (Version None)
Quarter: 2010Q2

REPORT INFORMATION
  Report Type: 
  Country: None (occurrence: None)
  Receive Date: 20100520
  Receipt Date: 20090521
  Transmission Date: 20101027
  Serious: Yes (Disabling, Other)
  Sender: FDA-Public Use
  Company Number: 2006000750

PATIENT
  Age: 50 Year
  Sex: Female

DRUGS (7)
  1. PROVERA [Suspect]
     Indication: HORMONE REPLACEMENT THERAPY
     Dosage: ORAL
     Route: 048
     Dates: start: 19890601, end: 19991201
  2. PROVERA [Suspect]
     Indication: MENOPAUSE
     Dosage: ORAL
     Route: 048
     Dates: start: 19890601, end: 19991201
  3. MEDROXYPROGESTERONE ACETATE [Suspect]
     Indication: HORMONE REPLACEMENT THERAPY
     Dosage: ORAL
     Route: 048
     Dates: start: 19890626, end: 19991220
  4. PREMARIN [Suspect]
     Indication: HORMONE REPLACEMENT THERAPY
     Dates: start: 19890401, end: 19991201
  5. PREMARIN [Suspect]
     Indication: MENOPAUSE
     Dates: start: 19890401, end: 19991201
  6. PREMPRO [Suspect]
     Indication: HORMONE REPLACEMENT THERAPY
     Dates: start: 19991201, end: 20010401
  7. PREMPRO [Suspect]
     Indication: MENOPAUSE
     Dates: start: 19991201, end: 20010401

REACTIONS (2)
  - BLINDNESS [None]
  - THROMBOSIS [None]
